FAERS Safety Report 9242358 (Version 1)
Quarter: 2013Q2

REPORT INFORMATION
  Report Type: Spontaneous
  Country: US (occurrence: US)
  Receive Date: 20130419
  Receipt Date: 20130419
  Transmission Date: 20140414
  Serious: Yes (Life-Threatening, Other)
  Sender: FDA-Public Use
  Company Number: US-ROXANE LABORATORIES, INC.-2013-RO-00488RO

PATIENT
  Age: 65 Year
  Sex: Male

DRUGS (12)
  1. LITHIUM CARBONATE [Suspect]
     Indication: BIPOLAR I DISORDER
     Dosage: 900 MG
  2. LEVOTHYROXIN [Concomitant]
     Dosage: 0.175 MG
  3. CELECOXIB [Concomitant]
     Indication: HEADACHE
  4. ATORVASTATIN [Concomitant]
     Dosage: 40 MG
  5. FLUOXETINE [Concomitant]
     Dosage: 40 MG
  6. BUPROPION [Concomitant]
     Dosage: 400 MG
  7. EZETIMIBE [Concomitant]
     Dosage: 10 MG
  8. DUTASTERIDE [Concomitant]
     Dosage: 0.5 MG
  9. TAMSULOSIN [Concomitant]
     Dosage: 0.4 MG
  10. LIDEX [Concomitant]
     Route: 061
  11. ASPIRIN [Concomitant]
     Dosage: 81 MG
  12. ESOMEPRAZOLE [Concomitant]
     Dosage: 40 MG

REACTIONS (5)
  - Multiple system atrophy [Not Recovered/Not Resolved]
  - Toxicity to various agents [Not Recovered/Not Resolved]
  - Hypothyroidism [Unknown]
  - Renal failure [Unknown]
  - Hyponatraemia [Unknown]
